FAERS Safety Report 5625427-1 (Version None)
Quarter: 2008Q1

REPORT INFORMATION
  Report Type: 
  Country: None (occurrence: None)
  Receive Date: 20080211
  Receipt Date: 20080129
  Transmission Date: 20080703
  Serious: Yes (Other)
  Sender: FDA-Public Use
  Company Number: 023265

PATIENT
  Age: 26 Year
  Sex: Female
  Weight: 72.6 kg

DRUGS (1)
  1. PLAN B [Suspect]
     Indication: POST COITAL CONTRACEPTION
     Dosage: 1 TABLET, Q12HR, ORAL
     Route: 048
     Dates: start: 20071218, end: 20071218

REACTIONS (3)
  - ABDOMINAL PAIN [None]
  - DYSMENORRHOEA [None]
  - MENOMETRORRHAGIA [None]
